FAERS Safety Report 6947173-4 (Version None)
Quarter: 2010Q3

REPORT INFORMATION
  Report Type: 
  Country: None (occurrence: None)
  Receive Date: 20100827
  Receipt Date: 20090902
  Transmission Date: 20110219
  Serious: No
  Sender: FDA-Public Use
  Company Number: US-ABBOTT-09P-163-0595215-00

PATIENT
  Sex: Male
  Weight: 95.34 kg

DRUGS (21)
  1. NIASPAN [Suspect]
     Indication: HIGH DENSITY LIPOPROTEIN DECREASED
     Dates: start: 20090812
  2. NIASPAN [Suspect]
     Indication: LOW DENSITY LIPOPROTEIN INCREASED
  3. TOPAMAX [Suspect]
     Indication: MIGRAINE
     Dates: start: 20090827
  4. TOPAMAX [Suspect]
     Dates: start: 20090820, end: 20090826
  5. LASIX [Concomitant]
     Indication: CORONARY ARTERY BYPASS
  6. LANSOPRAZOLE [Concomitant]
     Indication: GASTRIC PH DECREASED
  7. INSULIN ASPART [Concomitant]
     Indication: DIABETES MELLITUS
  8. INSULIN GLARGINE [Concomitant]
     Indication: DIABETES MELLITUS
  9. LEVOTHYROXINE SODIUM [Concomitant]
     Indication: THYROIDECTOMY
  10. ZETIA [Concomitant]
     Indication: BLOOD CHOLESTEROL INCREASED
  11. ALLOPURINOL [Concomitant]
     Indication: GOUT
  12. RANITIDINE [Concomitant]
     Indication: GASTROOESOPHAGEAL REFLUX DISEASE
  13. METOPROLOL [Concomitant]
     Indication: HYPERTENSION
  14. METOPROLOL [Concomitant]
     Indication: CORONARY ARTERY BYPASS
  15. PRAVASTATIN [Concomitant]
     Indication: BLOOD CHOLESTEROL INCREASED
  16. LISINOPRIL [Concomitant]
     Indication: HYPERTENSION
  17. COENZYME Q10 [Concomitant]
     Indication: PRODUCT USED FOR UNKNOWN INDICATION
  18. MULTI-VITAMIN [Concomitant]
     Indication: PRODUCT USED FOR UNKNOWN INDICATION
  19. FLAXSEED OIL [Concomitant]
     Indication: PRODUCT USED FOR UNKNOWN INDICATION
  20. VITAMIN D [Concomitant]
     Indication: PRODUCT USED FOR UNKNOWN INDICATION
  21. MAGNESIUM [Concomitant]
     Indication: PRODUCT USED FOR UNKNOWN INDICATION

REACTIONS (1)
  - URINE FLOW DECREASED [None]
